FAERS Safety Report 4505817-0 (Version None)
Quarter: 2004Q4

REPORT INFORMATION
  Report Type: 
  Country: None (occurrence: None)
  Receive Date: 20041119
  Receipt Date: 20041110
  Transmission Date: 20050328
  Serious: Yes (Other)
  Sender: FDA-Public Use
  Company Number: JP-JNJFOC-20040405176

PATIENT
  Age: 60 Year
  Sex: Female

DRUGS (1)
  1. LEVOFLOXACIN [Suspect]
     Route: 049
     Dates: start: 20010425, end: 20010428

REACTIONS (41)
  - ANAPHYLACTIC SHOCK [None]
  - ARTHRALGIA [None]
  - ARTHRITIS INFECTIVE [None]
  - ARTHRITIS REACTIVE [None]
  - ASTHENIA [None]
  - BAND NEUTROPHIL COUNT INCREASED [None]
  - BLEPHARITIS [None]
  - CAPILLARY FRAGILITY [None]
  - CARDIAC DISORDER [None]
  - DERMATITIS ATOPIC [None]
  - DERMATITIS EXFOLIATIVE [None]
  - DIZZINESS [None]
  - DRUG HYPERSENSITIVITY [None]
  - DYSPEPSIA [None]
  - ERYTHEMA [None]
  - ERYTHEMA NODOSUM [None]
  - HOARSENESS [None]
  - HYPOTONIA [None]
  - JOINT EFFUSION [None]
  - JOINT SWELLING [None]
  - MITRAL VALVE INCOMPETENCE [None]
  - MOUTH ULCERATION [None]
  - MULTIPLE ALLERGIES [None]
  - MYALGIA [None]
  - OEDEMA PERIPHERAL [None]
  - ORAL MUCOSAL BLISTERING [None]
  - OSTEOPOROSIS POSTMENOPAUSAL [None]
  - PHARYNGITIS [None]
  - PHARYNGOLARYNGEAL PAIN [None]
  - PHLEBITIS [None]
  - PHOTOSENSITIVITY REACTION [None]
  - RHEUMATOID ARTHRITIS [None]
  - SOMNOLENCE [None]
  - SWELLING FACE [None]
  - TENDON RUPTURE [None]
  - TENDONITIS [None]
  - TINNITUS [None]
  - TRICUSPID VALVE INCOMPETENCE [None]
  - VISUAL DISTURBANCE [None]
  - VOCAL CORD PARALYSIS [None]
  - WHITE BLOOD CELL COUNT DECREASED [None]
